FAERS Safety Report 24401205 (Version 1)
Quarter: 2024Q4

REPORT INFORMATION
  Report Type: Spontaneous
  Country: NL (occurrence: NL)
  Receive Date: 20241007
  Receipt Date: 20241007
  Transmission Date: 20250115
  Serious: Yes (Hospitalization, Other)
  Sender: TWI PHARMACEUTICALS
  Company Number: NL-TWI PHARMACEUTICAL, INC-20240900145

PATIENT
  Age: 89 Year
  Sex: Female

DRUGS (1)
  1. CYCLOBENZAPRINE HYDROCHLORIDE [Suspect]
     Active Substance: CYCLOBENZAPRINE HYDROCHLORIDE
     Indication: Back pain
     Dosage: 10 MG
     Route: 065

REACTIONS (1)
  - Distributive shock [Recovering/Resolving]
